FAERS Safety Report 9167525 (Version 2)
Quarter: 2013Q1

REPORT INFORMATION
  Report Type: Spontaneous
  Country: IT (occurrence: None)
  Receive Date: 20130307
  Receipt Date: 20130325
  Transmission Date: 20140127
  Serious: Yes (Other)
  Sender: FDA-Public Use
  Company Number: 2013AP003390

PATIENT
  Age: 88 Year
  Sex: Female

DRUGS (2)
  1. ZOLPIDEM TARTRATE [Suspect]
     Indication: INSOMNIA
     Dosage: 10 MG; TAB_FILM; PO; QD
     Route: 048
     Dates: start: 20130123, end: 20130128
  2. PROTELOS [Concomitant]

REACTIONS (2)
  - Hallucination [None]
  - Mania [None]
